FAERS Safety Report 8242969 (Version 2)
Quarter: 2013Q1

REPORT INFORMATION
  Report Type: Spontaneous
  Country: US (occurrence: US)
  Receive Date: 20111114
  Receipt Date: 20130301
  Transmission Date: 20140127
  Serious: Yes (Other)
  Sender: FDA-Public Use
  Company Number: US-ROCHE-1012039

PATIENT
  Sex: Female
  Weight: 86.71 kg

DRUGS (2)
  1. ACCUTANE [Suspect]
     Indication: ACNE
     Route: 065
     Dates: start: 1988, end: 1990
  2. ACCUTANE [Suspect]
     Route: 065
     Dates: start: 1990, end: 1992

REACTIONS (4)
  - Injury [Unknown]
  - Colitis ulcerative [Unknown]
  - Colitis ischaemic [Unknown]
  - Inflammatory bowel disease [Unknown]
